FAERS Safety Report 13393014 (Version 3)
Quarter: 2017Q2

REPORT INFORMATION
  Report Type: Spontaneous
  Country: IT (occurrence: IT)
  Receive Date: 20170331
  Receipt Date: 20170419
  Transmission Date: 20170830
  Serious: Yes (Hospitalization, Other)
  Sender: FDA-Public Use
  Company Number: IT-PFIZER INC-2017136090

PATIENT
  Age: 57 Year
  Sex: Male

DRUGS (1)
  1. SILDENAFIL CITRATE. [Suspect]
     Active Substance: SILDENAFIL CITRATE
     Dosage: 1 DF, AS NEEDED
     Route: 048

REACTIONS (7)
  - Ischaemic cerebral infarction [Unknown]
  - Vasodilatation [Recovering/Resolving]
  - Carotid artery stenosis [Unknown]
  - Erythema [Recovered/Resolved]
  - Histamine level increased [Recovering/Resolving]
  - Hypotension [Recovered/Resolved]
  - Drug hypersensitivity [Recovering/Resolving]

NARRATIVE: CASE EVENT DATE: 20170319
